FAERS Safety Report 4495195-8 (Version None)
Quarter: 2004Q4

REPORT INFORMATION
  Report Type: 
  Country: None (occurrence: None)
  Receive Date: 20041103
  Receipt Date: 20041018
  Transmission Date: 20050328
  Serious: Yes (Hospitalization)
  Sender: FDA-Public Use
  Company Number: 210061

PATIENT
  Age: 59 Year

DRUGS (4)
  1. AVASTIN [Suspect]
     Indication: CARCINOMA
     Dosage: 10MG/KG, Q2W, INTRAVENOUS
     Route: 042
     Dates: start: 20040620
  2. HYDROXYUREA [Suspect]
     Indication: CARCINOMA
     Dosage: 500 MG, BID, ORAL
     Route: 048
     Dates: start: 20040620
  3. FLUOROURACIL [Suspect]
     Indication: CARCINOMA
     Dosage: 600 MG/M2, Q2W, INTRAVENOUS
     Route: 042
     Dates: start: 20040620
  4. RADIATION THERAPY (RADIATION THERAPY) [Suspect]
     Indication: CARCINOMA
     Dosage: 70 GY, X5

REACTIONS (3)
  - HAEMORRHAGE [None]
  - PURULENT DISCHARGE [None]
  - RADIATION MUCOSITIS [None]
